FAERS Safety Report 7210073-9 (Version None)
Quarter: 2011Q1

REPORT INFORMATION
  Report Type: 
  Country: None (occurrence: None)
  Receive Date: 20110105
  Receipt Date: 20101228
  Transmission Date: 20110831
  Serious: Yes (Death)
  Sender: FDA-Public Use
  Company Number: KR-GENZYME-FLUD-1000600

PATIENT
  Age: 38 Year
  Sex: Female

DRUGS (8)
  1. CYCLOSPORINE [Concomitant]
     Dosage: 3 MG/KG, QD
     Route: 042
  2. METHOTREXATE [Concomitant]
     Indication: PROPHYLAXIS AGAINST GRAFT VERSUS HOST DISEASE
     Dosage: 5 MG/KG, QD, TRANSPLANT DAYS 1, 3, 6, 11
     Route: 042
  3. ACYCLOVIR [Concomitant]
     Indication: BONE MARROW CONDITIONING REGIMEN
     Route: 065
  4. NYSTATIN [Concomitant]
     Indication: BONE MARROW CONDITIONING REGIMEN
     Route: 065
  5. CYCLOSPORINE [Concomitant]
     Indication: PROPHYLAXIS AGAINST GRAFT VERSUS HOST DISEASE
     Dosage: 5 MG/KG, QD, DAY -1
     Route: 042
  6. FLUDARA [Suspect]
     Indication: BONE MARROW CONDITIONING REGIMEN
     Dosage: 25 MG/M2, QD
     Route: 065
  7. MELPHALAN [Suspect]
     Indication: BONE MARROW CONDITIONING REGIMEN
     Dosage: 140 MG/M2, QD
     Route: 065
  8. FILGRASTIM [Concomitant]
     Indication: PRODUCT USED FOR UNKNOWN INDICATION
     Dosage: 5 MCG/KG, QD
     Route: 065

REACTIONS (1)
  - DEATH [None]
